FAERS Safety Report 5626177-8 (Version None)
Quarter: 2008Q1

REPORT INFORMATION
  Report Type: 
  Country: None (occurrence: None)
  Receive Date: 20080212
  Receipt Date: 20080212
  Transmission Date: 20080703
  Serious: Yes (Hospitalization)
  Sender: FDA-Public Use
  Company Number: None

PATIENT
  Sex: Female
  Weight: 51.7 kg

DRUGS (2)
  1. DACTINOMYCIN [Suspect]
     Dosage: 2.3 MG 0.045 MG/KG/DAY X1 DOSE
  2. VINCRISTINE SULFATE [Suspect]
     Dosage: 6 MG; 1.5 MG/M2/DAY X 3 DOSES.

REACTIONS (16)
  - COAGULATION TEST ABNORMAL [None]
  - DEHYDRATION [None]
  - DIARRHOEA [None]
  - GAS GANGRENE [None]
  - HYPERBILIRUBINAEMIA [None]
  - ILEUS [None]
  - NAUSEA [None]
  - NECROTISING FASCIITIS [None]
  - NEUTROPENIA [None]
  - OLIGURIA [None]
  - PNEUMATOSIS INTESTINALIS [None]
  - PYREXIA [None]
  - RADIATION INJURY [None]
  - RHABDOMYOLYSIS [None]
  - TROPONIN INCREASED [None]
  - VOMITING [None]
